FAERS Safety Report 5050427-2 (Version None)
Quarter: 2006Q3

REPORT INFORMATION
  Report Type: 
  Country: None (occurrence: None)
  Receive Date: 20060707
  Receipt Date: 20060621
  Transmission Date: 20061208
  Serious: Yes (Death)
  Sender: FDA-Public Use
  Company Number: 8017672

PATIENT
  Age: 44 Year
  Sex: Female

DRUGS (5)
  1. KEPPRA [Suspect]
     Dosage: 1500 MG /D PO
     Route: 048
     Dates: start: 20060101, end: 20060428
  2. CARBAMAZEPINE [Concomitant]
  3. OXYGESIC [Concomitant]
  4. CELECOXIB [Concomitant]
  5. VALPROATE SODIUM [Concomitant]

REACTIONS (7)
  - AMNESIA [None]
  - ANXIETY [None]
  - COMPLEX REGIONAL PAIN SYNDROME [None]
  - DISEASE PROGRESSION [None]
  - DRUG INEFFECTIVE [None]
  - LOSS OF CONSCIOUSNESS [None]
  - STATUS EPILEPTICUS [None]
